FAERS Safety Report 18286362 (Version 4)
Quarter: 2020Q4

REPORT INFORMATION
  Report Type: Spontaneous
  Country: US (occurrence: US)
  Receive Date: 20200920
  Receipt Date: 20201028
  Transmission Date: 20210113
  Serious: No
  Sender: FDA-Public Use
  Company Number: US-009507513-2009USA007128

PATIENT
  Age: 17 Year
  Sex: Female
  Weight: 71.66 kg

DRUGS (5)
  1. NUVARING [Suspect]
     Active Substance: ETHINYL ESTRADIOL\ETONOGESTREL
     Dosage: 1 VAGINAL RING
     Route: 067
     Dates: start: 20200611
  2. NEXPLANON [Suspect]
     Active Substance: ETONOGESTREL
     Indication: CONTRACEPTION
     Dosage: 1 IMPLANT IN LEFT ARM EVERY THREE YEARS
     Route: 059
     Dates: start: 20200909
  3. NEXPLANON [Suspect]
     Active Substance: ETONOGESTREL
     Dosage: 1 IMPLANT
     Route: 059
     Dates: start: 20190716, end: 20200611
  4. NEXPLANON [Suspect]
     Active Substance: ETONOGESTREL
     Dosage: 1 IMPLANT
     Route: 059
     Dates: start: 20160510, end: 20190716
  5. NEXPLANON [Suspect]
     Active Substance: ETONOGESTREL
     Indication: CONTRACEPTION
     Dosage: 1 IMPLANT IN LEFT ARM EVERY THREE YEARS
     Route: 059
     Dates: start: 20200909, end: 20200909

REACTIONS (10)
  - Amenorrhoea [Unknown]
  - Complication of device insertion [Recovered/Resolved]
  - Therapeutic response unexpected [Unknown]
  - Device use issue [Unknown]
  - Dyspnoea [Unknown]
  - Menorrhagia [Unknown]
  - Chills [Unknown]
  - Metrorrhagia [Unknown]
  - Product quality issue [Unknown]
  - Incorrect product administration duration [Unknown]

NARRATIVE: CASE EVENT DATE: 20190510
